FAERS Safety Report 13338288 (Version 1)
Quarter: 2017Q1

REPORT INFORMATION
  Report Type: Spontaneous
  Country: US (occurrence: US)
  Receive Date: 20170315
  Receipt Date: 20170315
  Transmission Date: 20170428
  Serious: No
  Sender: FDA-Public Use
  Company Number: US-SHIRE-US201705690

PATIENT
  Sex: Female
  Weight: 84.35 kg

DRUGS (2)
  1. XIIDRA [Suspect]
     Active Substance: LIFITEGRAST
     Indication: OCULAR HYPERAEMIA
     Dosage: 1 GTT, 2X/DAY:BID (ONE DROP IN BOTH EYES TWICE DAILY)
     Route: 047
     Dates: start: 201701, end: 20170308
  2. PROGESTERONE. [Concomitant]
     Active Substance: PROGESTERONE
     Indication: PROGESTERONE DECREASED
     Dosage: UNK, 1X/DAY:QD

REACTIONS (3)
  - Product use issue [Recovered/Resolved]
  - Dry mouth [Recovering/Resolving]
  - Wrong technique in product usage process [Recovered/Resolved]

NARRATIVE: CASE EVENT DATE: 2017
